FAERS Safety Report 25024411 (Version 1)
Quarter: 2025Q1

REPORT INFORMATION
  Report Type: Spontaneous
  Country: CH (occurrence: CH)
  Receive Date: 20250228
  Receipt Date: 20250228
  Transmission Date: 20250409
  Serious: Yes (Life-Threatening, Hospitalization, Other)
  Sender: BAXTER
  Company Number: None

PATIENT
  Age: 21 Year
  Sex: Male
  Weight: 77 kg

DRUGS (5)
  1. CYCLOPHOSPHAMIDE [Suspect]
     Active Substance: CYCLOPHOSPHAMIDE
     Indication: Allogenic bone marrow transplantation therapy
     Route: 042
     Dates: start: 20250130, end: 20250202
  2. CYCLOPHOSPHAMIDE [Suspect]
     Active Substance: CYCLOPHOSPHAMIDE
     Route: 042
     Dates: start: 20250130, end: 20250202
  3. MESNA [Suspect]
     Active Substance: MESNA
     Indication: Allogenic bone marrow transplantation therapy
     Route: 042
     Dates: start: 20250130, end: 20250202
  4. CYCLOSPORINE [Concomitant]
     Active Substance: CYCLOSPORINE
     Indication: Prophylaxis against graft versus host disease
     Route: 042
     Dates: start: 20250203
  5. GRAFALON [Concomitant]
     Active Substance: LAPINE T-LYMPHOCYTE IMMUNE GLOBULIN
     Indication: Allogenic bone marrow transplantation therapy
     Route: 042

REACTIONS (3)
  - Cardiogenic shock [Not Recovered/Not Resolved]
  - Respiratory failure [Not Recovered/Not Resolved]
  - Cardiomyopathy [Not Recovered/Not Resolved]

NARRATIVE: CASE EVENT DATE: 20250204
